FAERS Safety Report 8303490 (Version 2)
Quarter: 2013Q1

REPORT INFORMATION
  Report Type: Report from Study
  Country: DE (occurrence: DE)
  Receive Date: 20111220
  Receipt Date: 20130130
  Transmission Date: 20140127
  Serious: Yes (Hospitalization)
  Sender: FDA-Public Use
  Company Number: PHHY2011DE108372

PATIENT
  Age: 50 Year
  Sex: Female
  Weight: 70 kg

DRUGS (5)
  1. ZOLEDRONATE [Suspect]
     Indication: BONE DISORDER
     Dosage: 4 MG, EVERY 4 WEEKS.
     Route: 042
     Dates: start: 20110627
  2. HERCEPTIN [Concomitant]
     Dosage: UNK UKN, UNK
     Dates: start: 200909
  3. NAVELBINE [Concomitant]
     Dosage: UNK UKN, UNK
     Dates: start: 20110530
  4. 5-FU [Concomitant]
     Dosage: UNK UKN, UNK
     Dates: start: 20110530
  5. RIBOFOLIN [Concomitant]
     Dosage: UNK UKN, UNK
     Dates: start: 20110530

REACTIONS (4)
  - Urinary tract infection [Recovering/Resolving]
  - Thrombosis [Recovering/Resolving]
  - Chest pain [Recovered/Resolved]
  - Bone pain [Recovering/Resolving]
